FAERS Safety Report 9233011 (Version 3)
Quarter: 2013Q2

REPORT INFORMATION
  Report Type: Report from Study
  Country: FR (occurrence: FR)
  Receive Date: 20130416
  Receipt Date: 20130513
  Transmission Date: 20140414
  Serious: Yes (Hospitalization, Other)
  Sender: FDA-Public Use
  Company Number: FR-MPIJNJ-2013-02476

PATIENT
  Sex: 0

DRUGS (4)
  1. VELCADE [Suspect]
     Indication: MANTLE CELL LYMPHOMA
     Dosage: 2 MG, CYCLIC
     Route: 042
     Dates: start: 20120914, end: 20130209
  2. MABTHERA [Suspect]
     Indication: MANTLE CELL LYMPHOMA
     Dosage: 528 MG, CYCLIC
     Route: 042
     Dates: start: 20120914, end: 20130205
  3. LEVACT [Suspect]
     Indication: MANTLE CELL LYMPHOMA
     Dosage: 127 MG, CYCLIC
     Route: 042
     Dates: start: 20120914, end: 20130206
  4. METHYLPREDNISOLONE [Suspect]
     Indication: MANTLE CELL LYMPHOMA
     Dosage: 100 MG, CYCLIC
     Route: 042
     Dates: start: 20120914, end: 20130205

REACTIONS (4)
  - Cytomegalovirus colitis [Recovered/Resolved]
  - Diarrhoea [Recovered/Resolved]
  - Dehydration [Recovered/Resolved]
  - Infectious disease carrier [Unknown]
